FAERS Safety Report 8187416 (Version 3)
Quarter: 2015Q1

REPORT INFORMATION
  Report Type: Spontaneous
  Country: US (occurrence: US)
  Receive Date: 20111018
  Receipt Date: 20150324
  Transmission Date: 20150721
  Serious: No
  Sender: FDA-Public Use
  Company Number: US-ASTRAZENECA-2010SE52113

PATIENT
  Sex: Female
  Weight: 69.4 kg

DRUGS (2)
  1. SYMBICORT [Suspect]
     Active Substance: BUDESONIDE\FORMOTEROL FUMARATE DIHYDRATE
     Indication: ASTHMA
     Dosage: 320 UG  TWICE A DAY
     Route: 055
  2. SYMBICORT [Suspect]
     Active Substance: BUDESONIDE\FORMOTEROL FUMARATE DIHYDRATE
     Indication: ASTHMA
     Dosage: 160/4.5 TWO PUFFS TWICE A DAY
     Route: 055
     Dates: start: 2010

REACTIONS (8)
  - Mydriasis [Unknown]
  - Drug effect increased [Unknown]
  - Throat irritation [Unknown]
  - Product taste abnormal [Unknown]
  - Intentional product misuse [Unknown]
  - Sensation of foreign body [Unknown]
  - Drug ineffective [Unknown]
  - Respiratory tract congestion [Unknown]
